FAERS Safety Report 4299905-4 (Version None)
Quarter: 2004Q1

REPORT INFORMATION
  Report Type: 
  Country: None (occurrence: None)
  Receive Date: 20040219
  Receipt Date: 20040219
  Transmission Date: 20041129
  Serious: Yes (Hospitalization)
  Sender: FDA-Public Use
  Company Number: None

PATIENT
  Age: 84 Year
  Sex: Male
  Weight: 117.9352 kg

DRUGS (3)
  1. WARFARIN SODIUM [Suspect]
     Indication: ATRIAL FIBRILLATION
  2. GOSERELIN [Concomitant]
  3. OXYBUTININ [Concomitant]

REACTIONS (6)
  - CATHETER SITE HAEMORRHAGE [None]
  - DUODENAL ULCER HAEMORRHAGE [None]
  - FAECAL OCCULT BLOOD POSITIVE [None]
  - GASTRIC ULCER HAEMORRHAGE [None]
  - HAEMATOCRIT DECREASED [None]
  - HAEMOGLOBIN DECREASED [None]
